FAERS Safety Report 6652275-6 (Version None)
Quarter: 2010Q1

REPORT INFORMATION
  Report Type: 
  Country: None (occurrence: None)
  Receive Date: 20100323
  Receipt Date: 20100308
  Transmission Date: 20100710
  Serious: Yes (Other)
  Sender: FDA-Public Use
  Company Number: 1-21857286

PATIENT
  Sex: Female
  Weight: 86.1834 kg

DRUGS (1)
  1. SOLODYN [Suspect]
     Indication: ACNE
     Dosage: 135 MG ONCE DAILY, ORAL
     Route: 048
     Dates: start: 20080701, end: 20100228

REACTIONS (5)
  - FALSE POSITIVE LABORATORY RESULT [None]
  - HEPATIC STEATOSIS [None]
  - INSULIN RESISTANCE [None]
  - POLYCYSTIC OVARIES [None]
  - WEIGHT INCREASED [None]
